FAERS Safety Report 6305796-X (Version None)
Quarter: 2009Q3

REPORT INFORMATION
  Report Type: 
  Country: None (occurrence: None)
  Receive Date: 20090812
  Receipt Date: 20070611
  Transmission Date: 20100115
  Serious: Yes (Hospitalization, Other)
  Sender: FDA-Public Use
  Company Number: US-ASTRAZENECA-2006UW25459

PATIENT
  Age: 8160 Day
  Sex: Male
  Weight: 62.1 kg

DRUGS (7)
  1. SEROQUEL [Suspect]
     Indication: BIPOLAR DISORDER
     Route: 048
     Dates: start: 20051021, end: 20060113
  2. SEROQUEL [Suspect]
     Indication: SLEEP DISORDER
     Route: 048
     Dates: start: 20051021, end: 20060113
  3. SEROQUEL [Suspect]
     Dosage: 25 - 200 MG DAILY
     Route: 048
     Dates: start: 20051021
  4. SEROQUEL [Suspect]
     Dosage: 25 - 200 MG DAILY
     Route: 048
     Dates: start: 20051021
  5. DEPAKOTE [Concomitant]
     Dates: start: 20051106
  6. NEURONTIN [Concomitant]
     Dates: start: 20051120
  7. NEURONTIN [Concomitant]
     Dosage: 1.8  - 2.4 GM DAILY
     Dates: start: 20060424

REACTIONS (7)
  - DIABETES MELLITUS [None]
  - DIABETES MELLITUS INADEQUATE CONTROL [None]
  - DIABETIC KETOACIDOSIS [None]
  - HYPOAESTHESIA [None]
  - NEUROPATHY PERIPHERAL [None]
  - PARAESTHESIA [None]
  - TYPE 1 DIABETES MELLITUS [None]
